FAERS Safety Report 26046639 (Version 1)
Quarter: 2025Q4

REPORT INFORMATION
  Report Type: Spontaneous
  Country: US (occurrence: None)
  Receive Date: 20251113
  Receipt Date: 20251113
  Transmission Date: 20260117
  Serious: No
  Sender: FDA-CTU
  Company Number: None

PATIENT
  Age: 65 Year
  Sex: Female

DRUGS (2)
  1. VENLAFAXINE [Suspect]
     Active Substance: VENLAFAXINE HYDROCHLORIDE
  2. CYMBALTA [Suspect]
     Active Substance: DULOXETINE HYDROCHLORIDE

REACTIONS (10)
  - Anxiety [None]
  - Decreased appetite [None]
  - Palpitations [None]
  - Electric shock sensation [None]
  - Tremor [None]
  - Feeling abnormal [None]
  - Drug dependence [None]
  - Drug dependence [None]
  - Depressed mood [None]
  - Drug ineffective [None]

NARRATIVE: CASE EVENT DATE: 20250615
